FAERS Safety Report 5702138-5 (Version None)
Quarter: 2008Q2

REPORT INFORMATION
  Report Type: 
  Country: None (occurrence: None)
  Receive Date: 20080411
  Receipt Date: 20080402
  Transmission Date: 20081010
  Serious: Yes (Hospitalization, Other)
  Sender: FDA-Public Use
  Company Number: US-ROCHE-537122

PATIENT
  Sex: Female
  Weight: 67.1 kg

DRUGS (5)
  1. PEG-INTERFERON A-2A (RO 25-8310) [Suspect]
     Dosage: THE PATIENT WAS TAKING PEGASYS PREFILLED SYRINGE 180 MCG ONCE PER WEEK BUT ON AN UNSPECIFIED DATE, +
     Route: 065
     Dates: start: 20070216
  2. RIBAVIRIN [Suspect]
     Dosage: THE PATIENT WAS TAKING RIBAVIRIN 3 TABLETS IN THE MORNING AND 2 TABLETS IN THE EVENING.
     Route: 048
     Dates: start: 20070216
  3. NOVOLIN [Concomitant]
     Indication: TYPE 2 DIABETES MELLITUS
  4. ASPIRIN [Concomitant]
     Indication: PROPHYLAXIS
     Dosage: THE PATIENT WAS TAKING ECOTRIN FOR ONLY 24 HOURS AFTER EACH PEGASYS INJECTIONS.
  5. ZYRTEC [Concomitant]
     Dosage: THE PATIENT WAS TAKING ZYRTEC 10 MG ONE TABLET DAILY.

REACTIONS (4)
  - ANAEMIA [None]
  - EROSIVE OESOPHAGITIS [None]
  - GASTRITIS EROSIVE [None]
  - HAEMATEMESIS [None]
